FAERS Safety Report 14813658 (Version 1)
Quarter: 2018Q2

REPORT INFORMATION
  Report Type: Spontaneous
  Country: FR (occurrence: FR)
  Receive Date: 20180426
  Receipt Date: 20180426
  Transmission Date: 20180711
  Serious: Yes (Other)
  Sender: FDA-Public Use
  Company Number: FR-MERCK KGAA-2046567

PATIENT
  Age: 52 Year
  Sex: Female

DRUGS (1)
  1. NOVOTHYROX [Suspect]
     Active Substance: LEVOTHYROXINE SODIUM
     Indication: BASEDOW^S DISEASE
     Dates: end: 201710

REACTIONS (23)
  - Abdominal pain upper [Recovered/Resolved]
  - Disturbance in attention [Recovered/Resolved]
  - Fatigue [Recovered/Resolved]
  - Thyroxine free increased [Recovered/Resolved]
  - Pain [Recovered/Resolved]
  - Lymphocyte count decreased [Recovering/Resolving]
  - Eosinophil count decreased [Recovered/Resolved]
  - Housebound [Recovered/Resolved]
  - Insomnia [Recovered/Resolved]
  - Frequent bowel movements [Recovered/Resolved]
  - Social avoidant behaviour [Recovered/Resolved]
  - Stress [Recovered/Resolved]
  - Anxiety [Recovered/Resolved]
  - Musculoskeletal discomfort [None]
  - Abdominal distension [Recovered/Resolved]
  - Loss of personal independence in daily activities [Recovered/Resolved]
  - Impaired work ability [Recovered/Resolved]
  - Diarrhoea [Recovered/Resolved]
  - Flatulence [Recovered/Resolved]
  - Emotional distress [Recovered/Resolved]
  - Loss of libido [Recovered/Resolved]
  - Personal relationship issue [Recovered/Resolved]
  - Fear of disease [Recovered/Resolved]

NARRATIVE: CASE EVENT DATE: 20170615
